FAERS Safety Report 16698958 (Version 1)
Quarter: 2019Q3

REPORT INFORMATION
  Report Type: Spontaneous
  Country: US (occurrence: US)
  Receive Date: 20190813
  Receipt Date: 20190813
  Transmission Date: 20191004
  Serious: No
  Sender: FDA-Public Use
  Company Number: US-PERRIGO-18US012969

PATIENT
  Age: 78 Year
  Sex: Male
  Weight: 83.9 kg

DRUGS (5)
  1. METAFIN [Concomitant]
     Indication: PULMONARY FIBROSIS
     Dosage: UNK
     Route: 065
     Dates: start: 201810
  2. PANTOPRAZOLE [Concomitant]
     Active Substance: PANTOPRAZOLE
     Indication: GASTROOESOPHAGEAL REFLUX DISEASE
     Dosage: UNK
     Route: 065
     Dates: start: 2017
  3. LORATADINE. [Suspect]
     Active Substance: LORATADINE
     Indication: PERENNIAL ALLERGY
     Dosage: 10 MG, PRN
     Route: 048
     Dates: start: 20040625, end: 2018
  4. LORATADINE. [Suspect]
     Active Substance: LORATADINE
     Dosage: 10 MG, QD
     Route: 048
     Dates: start: 20181026, end: 20181108
  5. PREDNISONE. [Concomitant]
     Active Substance: PREDNISONE
     Indication: FIBROSIS
     Dosage: 10 MG
     Route: 065
     Dates: start: 2014

REACTIONS (1)
  - Therapeutic product effect decreased [Unknown]

NARRATIVE: CASE EVENT DATE: 20181108
